FAERS Safety Report 11190312 (Version 3)
Quarter: 2015Q2

REPORT INFORMATION
  Report Type: Spontaneous
  Country: ES (occurrence: ES)
  Receive Date: 20150615
  Receipt Date: 20150629
  Transmission Date: 20150821
  Serious: Yes (Other)
  Sender: FDA-Public Use
  Company Number: ES-ROCHE-1593341

PATIENT
  Age: 8 Year
  Sex: Male

DRUGS (3)
  1. HEPARIN [Suspect]
     Active Substance: HEPARIN SODIUM
     Indication: VENA CAVA THROMBOSIS
     Route: 065
  2. ALTEPLASE [Suspect]
     Active Substance: ALTEPLASE
     Indication: VENA CAVA THROMBOSIS
     Route: 040
  3. ALTEPLASE [Suspect]
     Active Substance: ALTEPLASE
     Route: 040

REACTIONS (2)
  - Product use issue [Unknown]
  - Cardiac tamponade [Unknown]
